FAERS Safety Report 8459654 (Version 3)
Quarter: 2013Q1

REPORT INFORMATION
  Report Type: Spontaneous
  Country: US (occurrence: US)
  Receive Date: 20120314
  Receipt Date: 20130114
  Transmission Date: 20140127
  Serious: Yes (Hospitalization)
  Sender: FDA-Public Use
  Company Number: US-ASTRAZENECA-2011SE69779

PATIENT
  Age: 84 Year
  Sex: Female

DRUGS (2)
  1. TOPROL XL [Suspect]
     Route: 048
  2. TOPROL XL [Suspect]
     Dosage: GENERIC
     Route: 048

REACTIONS (6)
  - Pneumonia [Unknown]
  - Hypertension [Unknown]
  - Stress [Unknown]
  - Cystitis [Unknown]
  - Hearing impaired [Unknown]
  - Drug ineffective [Unknown]
